FAERS Safety Report 9993743 (Version 1)
Quarter: 2014Q1

REPORT INFORMATION
  Report Type: Spontaneous
  Country: SE (occurrence: SE)
  Receive Date: 20140310
  Receipt Date: 20140310
  Transmission Date: 20141002
  Serious: Yes (Other)
  Sender: FDA-Public Use
  Company Number: PHHY2014SE024883

PATIENT
  Age: 67 Year
  Sex: Female

DRUGS (1)
  1. ALENDRONIC ACID [Suspect]
     Indication: OSTEOPOROSIS
     Dosage: 70 MG, PER WEEK
     Dates: start: 2007

REACTIONS (4)
  - Ear infection [Unknown]
  - Bone disorder [Unknown]
  - Pruritus [Recovered/Resolved]
  - Osteonecrosis [Unknown]
